FAERS Safety Report 11965052 (Version 1)
Quarter: 2016Q1

REPORT INFORMATION
  Report Type: Spontaneous
  Country: US (occurrence: US)
  Receive Date: 20160127
  Receipt Date: 20160127
  Transmission Date: 20160526
  Serious: Yes (Other)
  Sender: FDA-Public Use
  Company Number: US-B.I. PHARMACEUTICALS,INC./RIDGEFIELD-2016-BI-02656BP

PATIENT
  Age: 50 Year
  Sex: Female
  Weight: 76.66 kg

DRUGS (5)
  1. SPIRIVA [Suspect]
     Active Substance: TIOTROPIUM BROMIDE MONOHYDRATE
     Indication: PULMONARY EMBOLISM
     Dosage: 36 MCG
     Route: 055
     Dates: start: 2012, end: 2014
  2. SYMBICORT [Concomitant]
     Active Substance: BUDESONIDE\FORMOTEROL FUMARATE DIHYDRATE
     Indication: PULMONARY EMBOLISM
     Dosage: 4 ANZ
     Route: 055
     Dates: start: 2012
  3. ALBUTEROL. [Concomitant]
     Active Substance: ALBUTEROL
     Indication: PULMONARY EMBOLISM
     Dosage: 12 ANZ
     Route: 055
     Dates: start: 2012
  4. SPIRIVA [Suspect]
     Active Substance: TIOTROPIUM BROMIDE MONOHYDRATE
     Dosage: 18 MCG
     Route: 055
     Dates: start: 201601
  5. SPIRIVA [Suspect]
     Active Substance: TIOTROPIUM BROMIDE MONOHYDRATE
     Dosage: 18 MCG
     Route: 048
     Dates: start: 20160114, end: 20160114

REACTIONS (4)
  - Incorrect dosage administered [Recovered/Resolved]
  - Pulmonary hypertension [Not Recovered/Not Resolved]
  - Off label use [Unknown]
  - Incorrect route of drug administration [Recovered/Resolved]

NARRATIVE: CASE EVENT DATE: 2012
